FAERS Safety Report 9381868 (Version 1)
Quarter: 2013Q3

REPORT INFORMATION
  Report Type: Spontaneous
  Country: CN (occurrence: CN)
  Receive Date: 20130703
  Receipt Date: 20130703
  Transmission Date: 20140515
  Serious: Yes (Other)
  Sender: FDA-Public Use
  Company Number: CN-PFIZER INC-2013196133

PATIENT
  Age: 84 Year
  Sex: Male

DRUGS (1)
  1. PIPERACILLIN/TAZOBACTAM [Suspect]
     Indication: LOWER RESPIRATORY TRACT INFECTION
     Dosage: 4.5 G, 2X/DAY
     Route: 041

REACTIONS (2)
  - Clonic convulsion [Recovered/Resolved]
  - Dysphoria [Recovered/Resolved]
